FAERS Safety Report 18587303 (Version 1)
Quarter: 2020Q4

REPORT INFORMATION
  Report Type: Spontaneous
  Country: US (occurrence: US)
  Receive Date: 20201023
  Receipt Date: 20201023
  Transmission Date: 20210114
  Serious: Yes (Death)
  Sender: FDA-Public Use
  Company Number: None

PATIENT
  Age: 7 Decade
  Sex: Male

DRUGS (3)
  1. HYDROXYCHLOROQUINE [Suspect]
     Active Substance: HYDROXYCHLOROQUINE
     Indication: COVID-19
     Dates: start: 2020
  2. TOCILIZUMAB. [Suspect]
     Active Substance: TOCILIZUMAB
     Indication: COVID-19
     Dates: start: 2020
  3. DARUNAVIR-RITONAVIR [Suspect]
     Active Substance: DARUNAVIR\RITONAVIR
     Indication: COVID-19
     Dosage: ?          OTHER DOSE:800/100MG;?
     Dates: start: 2020

REACTIONS (6)
  - Renal transplant [None]
  - Culture urine positive [None]
  - Klebsiella test positive [None]
  - Blood culture positive [None]
  - Immunosuppression [None]
  - Off label use [None]
